FAERS Safety Report 9350762 (Version 3)
Quarter: 2013Q3

REPORT INFORMATION
  Report Type: Spontaneous
  Country: JP (occurrence: JP)
  Receive Date: 20130617
  Receipt Date: 20130820
  Transmission Date: 20140515
  Serious: Yes (Other)
  Sender: FDA-Public Use
  Company Number: JP-TEVA-410405ISR

PATIENT
  Age: 77 Year
  Sex: Male

DRUGS (3)
  1. DIOVAN,TABLETS,40MG [Suspect]
     Dosage: 80 MILLIGRAM DAILY;
     Route: 048
     Dates: end: 20130531
  2. CELECOX TABLETS 100MG [Suspect]
     Dosage: 200 MILLIGRAM DAILY;
     Dates: end: 20130531
  3. GASPORT,TAB,10MG [Concomitant]
     Dosage: 20 MILLIGRAM DAILY;
     Route: 048
     Dates: end: 20130531

REACTIONS (1)
  - Rhabdomyolysis [Recovering/Resolving]
